FAERS Safety Report 21210646 (Version 3)
Quarter: 2022Q3

REPORT INFORMATION
  Report Type: Spontaneous
  Country: JP (occurrence: JP)
  Receive Date: 20220815
  Receipt Date: 20220913
  Transmission Date: 20221027
  Serious: Yes (Death, Other)
  Sender: FDA-Public Use
  Company Number: JP-ALXN-A202209347

PATIENT
  Age: 53 Year
  Sex: Male
  Weight: 71 kg

DRUGS (5)
  1. SOLIRIS [Suspect]
     Active Substance: ECULIZUMAB
     Indication: Atypical haemolytic uraemic syndrome
     Dosage: 900 MG, SINGLE
     Route: 042
     Dates: start: 20220803, end: 20220803
  2. DEFITELIO [Concomitant]
     Active Substance: DEFIBROTIDE SODIUM
     Indication: Venoocclusive liver disease
     Dosage: 6.25 MG/KG, QID
     Route: 042
     Dates: start: 20220729, end: 20220803
  3. FOSCARNET SODIUM [Concomitant]
     Active Substance: FOSCARNET SODIUM
     Indication: Cytomegalovirus viraemia
     Dosage: 60 MG/KG, BID
     Route: 042
     Dates: start: 20220610, end: 20220707
  4. TACROLIMUS [Concomitant]
     Active Substance: TACROLIMUS
     Indication: Prophylaxis against graft versus host disease
     Dosage: 0.02-0.03 MG/KG (SUSTAINED)
     Route: 042
     Dates: start: 20220628, end: 20220807
  5. TEMCELL [Concomitant]
     Indication: Prophylaxis against graft versus host disease
     Dosage: UNK UNK, QD(TOTAL 5 TIMES)
     Route: 042
     Dates: start: 20220630, end: 20220714

REACTIONS (1)
  - Multiple organ dysfunction syndrome [Fatal]

NARRATIVE: CASE EVENT DATE: 20220807
